FAERS Safety Report 12632229 (Version 2)
Quarter: 2016Q3

REPORT INFORMATION
  Report Type: Spontaneous
  Country: US (occurrence: US)
  Receive Date: 20160808
  Receipt Date: 20160808
  Transmission Date: 20161109
  Serious: No
  Sender: FDA-Public Use
  Company Number: US-BEH-2016062216

PATIENT
  Sex: Female
  Weight: 89 kg

DRUGS (24)
  1. HIZENTRA [Suspect]
     Active Substance: HUMAN IMMUNOGLOBULIN G
     Indication: IMMUNODEFICIENCY COMMON VARIABLE
     Route: 058
     Dates: start: 20110725
  2. VITAMIN B [Concomitant]
     Active Substance: VITAMIN B
  3. LMX [Concomitant]
     Active Substance: LIDOCAINE
  4. ASTEPRO [Concomitant]
     Active Substance: AZELASTINE HYDROCHLORIDE
  5. PLAVIX [Concomitant]
     Active Substance: CLOPIDOGREL BISULFATE
  6. ISO [Concomitant]
  7. PAROXETINE. [Concomitant]
     Active Substance: PAROXETINE
  8. POTASSIUM [Concomitant]
     Active Substance: POTASSIUM
  9. NASONEX [Concomitant]
     Active Substance: MOMETASONE FUROATE
  10. METHIMAZOLE. [Concomitant]
     Active Substance: METHIMAZOLE
  11. DIPHENHYDRAMINE. [Concomitant]
     Active Substance: DIPHENHYDRAMINE
  12. EPIPEN [Concomitant]
     Active Substance: EPINEPHRINE
  13. BONIVA [Concomitant]
     Active Substance: IBANDRONATE SODIUM
  14. SYMBICORT [Concomitant]
     Active Substance: BUDESONIDE\FORMOTEROL FUMARATE DIHYDRATE
  15. CALCIUM [Concomitant]
     Active Substance: CALCIUM
  16. ALBUTEROL. [Concomitant]
     Active Substance: ALBUTEROL
  17. ZYRTEC [Concomitant]
     Active Substance: CETIRIZINE HYDROCHLORIDE
  18. ACETAMINOPHEN. [Concomitant]
     Active Substance: ACETAMINOPHEN
  19. LASIX [Concomitant]
     Active Substance: FUROSEMIDE
  20. ATROVENT [Concomitant]
     Active Substance: IPRATROPIUM BROMIDE
  21. TRAVATAN [Concomitant]
     Active Substance: TRAVOPROST
  22. ZANTAC [Concomitant]
     Active Substance: RANITIDINE HYDROCHLORIDE
  23. ALVESCO [Concomitant]
     Active Substance: CICLESONIDE
  24. DOXAZOSIN [Concomitant]
     Active Substance: DOXAZOSIN\DOXAZOSIN MESYLATE

REACTIONS (1)
  - Rash [Unknown]
